FAERS Safety Report 14433963 (Version 2)
Quarter: 2018Q1

REPORT INFORMATION
  Report Type: Report from Study
  Country: MX (occurrence: MX)
  Receive Date: 20180124
  Receipt Date: 20180126
  Transmission Date: 20180509
  Serious: Yes (Other)
  Sender: FDA-Public Use
  Company Number: PHHY2018MX010596

PATIENT
  Sex: Female

DRUGS (2)
  1. DIOVAN [Suspect]
     Active Substance: VALSARTAN
     Indication: HYPERTENSION
     Dosage: 80 MG, QD
     Route: 048
  2. PERSANTIN [Concomitant]
     Active Substance: DIPYRIDAMOLE
     Indication: CARDIOVASCULAR DISORDER
     Dosage: 50 MG, QD STARTED 12 YEARS AGO
     Route: 065

REACTIONS (1)
  - Deafness [Not Recovered/Not Resolved]
